FAERS Safety Report 10572139 (Version 3)
Quarter: 2015Q1

REPORT INFORMATION
  Report Type: Spontaneous
  Country: FR (occurrence: FR)
  Receive Date: 20141107
  Receipt Date: 20150206
  Transmission Date: 20150720
  Serious: Yes (Hospitalization)
  Sender: FDA-Public Use
  Company Number: FR-ASTRAZENECA-2014SE83416

PATIENT
  Age: 22321 Day
  Sex: Male
  Weight: 117 kg

DRUGS (9)
  1. BISOCE [Concomitant]
     Active Substance: BISOPROLOL
     Dates: start: 20141008
  2. BRILIQUE [Suspect]
     Active Substance: TICAGRELOR
     Indication: ACUTE CORONARY SYNDROME
     Route: 048
     Dates: start: 20141006, end: 20141013
  3. TAHOR [Concomitant]
     Active Substance: ATORVASTATIN CALCIUM
     Dates: start: 20141007
  4. NICOPATCH [Concomitant]
     Active Substance: NICOTINE
  5. GLUCOPHAGE [Concomitant]
     Active Substance: METFORMIN HYDROCHLORIDE
     Indication: TYPE 2 DIABETES MELLITUS
  6. VICTOZA [Concomitant]
     Active Substance: LIRAGLUTIDE
     Indication: TYPE 2 DIABETES MELLITUS
  7. INEXIUM [Concomitant]
     Active Substance: ESOMEPRAZOLE
     Dates: start: 20141007
  8. KARDEGIC [Concomitant]
     Active Substance: ASPIRIN LYSINE
     Dates: start: 20141006
  9. TRIATEC [Concomitant]
     Active Substance: RAMIPRIL

REACTIONS (1)
  - Toxic skin eruption [Recovered/Resolved]

NARRATIVE: CASE EVENT DATE: 20141009
